FAERS Safety Report 15454184 (Version 2)
Quarter: 2018Q4

REPORT INFORMATION
  Report Type: Spontaneous
  Country: US (occurrence: US)
  Receive Date: 20181002
  Receipt Date: 20181011
  Transmission Date: 20190204
  Serious: No
  Sender: FDA-Public Use
  Company Number: US-UNITED THERAPEUTICS-UNT-2018-015744

PATIENT
  Age: 65 Year
  Sex: Female
  Weight: 59.41 kg

DRUGS (3)
  1. REMODULIN [Suspect]
     Active Substance: TREPROSTINIL
     Indication: PULMONARY HYPERTENSION
     Dosage: 0.091 ?G/KG, CONTINUING
     Route: 041
     Dates: start: 20050511
  2. ALBUTEROL                          /00139501/ [Suspect]
     Active Substance: ALBUTEROL
     Indication: RESPIRATION ABNORMAL
     Dosage: UNK
     Route: 065
     Dates: start: 20180925
  3. REVATIO [Concomitant]
     Active Substance: SILDENAFIL CITRATE
     Indication: PRODUCT USED FOR UNKNOWN INDICATION
     Route: 065

REACTIONS (4)
  - Cough [Unknown]
  - Respiration abnormal [Unknown]
  - Infection [Unknown]
  - Tremor [Unknown]

NARRATIVE: CASE EVENT DATE: 20180925
